FAERS Safety Report 9525379 (Version 1)
Quarter: 2013Q1

REPORT INFORMATION
  Report Type: Spontaneous
  Country: US (occurrence: None)
  Receive Date: 20130305
  Receipt Date: 20130305
  Transmission Date: 20140127
  Serious: Yes (Other)
  Sender: FDA-Public Use
  Company Number: 163-21880-12012735

PATIENT
  Age: 59 Year
  Sex: Male

DRUGS (2)
  1. REVLIMID [Suspect]
     Dosage: 5 MG, 1 IN 1 D, PO
     Route: 048
     Dates: start: 20110925
  2. PLAVIX (CLOPIDOGREL SULFATE) (UNKNOWN) [Concomitant]

REACTIONS (6)
  - Neutropenia [None]
  - Swelling face [None]
  - Pruritus [None]
  - Rash [None]
  - Constipation [None]
  - Local swelling [None]
